FAERS Safety Report 10907111 (Version 1)
Quarter: 2015Q1

REPORT INFORMATION
  Report Type: Spontaneous
  Country: US (occurrence: None)
  Receive Date: 20150309
  Receipt Date: 20150309
  Transmission Date: 20150721
  Serious: Yes (Life-Threatening, Hospitalization)
  Sender: FDA-Public Use
  Company Number: None

PATIENT
  Age: 31 Year
  Sex: Female
  Weight: 127.46 kg

DRUGS (13)
  1. MULTIVITAMIN [Concomitant]
     Active Substance: VITAMINS
  2. GLATIRAMER ACETATE. [Suspect]
     Active Substance: GLATIRAMER ACETATE
     Indication: MULTIPLE SCLEROSIS
     Dosage: GIVEN INTO/UNDER THE SKIN
     Dates: start: 20150112, end: 20150305
  3. RITALIN [Concomitant]
     Active Substance: METHYLPHENIDATE HYDROCHLORIDE
  4. BIOTIN [Concomitant]
     Active Substance: BIOTIN
  5. VITAMIN B12 [Concomitant]
     Active Substance: CYANOCOBALAMIN
  6. TRAZODONE [Concomitant]
     Active Substance: TRAZODONE HYDROCHLORIDE
  7. NORA BE [Concomitant]
     Active Substance: NORETHINDRONE
  8. VITAMIN D-3 [Concomitant]
  9. ATIVAN [Concomitant]
     Active Substance: LORAZEPAM
  10. CALCIUM [Concomitant]
     Active Substance: CALCIUM
  11. COUMADIN [Concomitant]
     Active Substance: WARFARIN SODIUM
  12. LEXAPRO [Concomitant]
     Active Substance: ESCITALOPRAM OXALATE
  13. IRON [Concomitant]
     Active Substance: IRON

REACTIONS (6)
  - Pulmonary embolism [None]
  - Multiple sclerosis relapse [None]
  - Dizziness [None]
  - Cognitive disorder [None]
  - Pyrexia [None]
  - Fatigue [None]

NARRATIVE: CASE EVENT DATE: 20150126
